FAERS Safety Report 5117961-8 (Version None)
Quarter: 2006Q3

REPORT INFORMATION
  Report Type: 
  Country: None (occurrence: None)
  Receive Date: 20060926
  Receipt Date: 20060915
  Transmission Date: 20061208
  Serious: Yes (Death)
  Sender: FDA-Public Use
  Company Number: 2006JP001914

PATIENT
  Age: 55 Year
  Sex: Male
  Weight: 44 kg

DRUGS (11)
  1. FUNGUARD              (MICAFUNGIN) [Suspect]
     Indication: BRONCHOPULMONARY ASPERGILLOSIS
     Dosage: 150 MG, UNKNOWN/D, IV DRIP : 100 MG, UID/QD, IV DRIP
     Route: 041
     Dates: start: 20060626, end: 20060626
  2. FUNGUARD              (MICAFUNGIN) [Suspect]
     Indication: BRONCHOPULMONARY ASPERGILLOSIS
     Dosage: 150 MG, UNKNOWN/D, IV DRIP : 100 MG, UID/QD, IV DRIP
     Route: 041
     Dates: start: 20051027
  3. LASIX [Concomitant]
  4. ALDACTONE [Concomitant]
  5. SOLDACTONE (POTASSIUM CANRENOATE) [Concomitant]
  6. AMARYL [Concomitant]
  7. GASTER D ORODISPERSABLE CR [Concomitant]
  8. LIVACT (AMINO ACIDS NOS) [Concomitant]
  9. URSO 250 [Concomitant]
  10. SELBEX (TEPRENONE) [Concomitant]
  11. AMINOLEBAN (AMINO ACIDS NOS) [Concomitant]

REACTIONS (20)
  - BLOOD PRESSURE IMMEASURABLE [None]
  - BRONCHOPULMONARY ASPERGILLOSIS [None]
  - CARDIAC ARREST [None]
  - CONDITION AGGRAVATED [None]
  - DEPRESSED LEVEL OF CONSCIOUSNESS [None]
  - DIABETES MELLITUS [None]
  - DIABETES MELLITUS INADEQUATE CONTROL [None]
  - DYSPHORIA [None]
  - HEART RATE INCREASED [None]
  - HEPATIC FAILURE [None]
  - HYPERHIDROSIS [None]
  - LIVER DISORDER [None]
  - LOSS OF CONSCIOUSNESS [None]
  - MYDRIASIS [None]
  - NAUSEA [None]
  - OXYGEN SATURATION DECREASED [None]
  - PERIPHERAL COLDNESS [None]
  - PYREXIA [None]
  - SEPSIS [None]
  - UPPER GASTROINTESTINAL HAEMORRHAGE [None]
